FAERS Safety Report 16598491 (Version 5)
Quarter: 2020Q3

REPORT INFORMATION
  Report Type: Spontaneous
  Country: DE (occurrence: DE)
  Receive Date: 20190719
  Receipt Date: 20200902
  Transmission Date: 20201102
  Serious: Yes (Hospitalization)
  Sender: FDA-Public Use
  Company Number: DE-009507513-1907DEU011460

PATIENT
  Age: 86 Year
  Sex: Female
  Weight: 95 kg

DRUGS (11)
  1. OLMESARTAN MEDOXOMIL (+) AMLODIPINE BESYLATE (+) HYDROCHLOROTHIAZIDE [Suspect]
     Active Substance: AMLODIPINE BESYLATE\HYDROCHLOROTHIAZIDE\OLMESARTAN MEDOXOMIL
     Dosage: 5 MILLIGRAM, BID
     Route: 048
  2. ALLOPURINOL. [Suspect]
     Active Substance: ALLOPURINOL
     Indication: PRODUCT USED FOR UNKNOWN INDICATION
     Dosage: 100 MG, 1?0?0?0, TABLET
     Route: 048
  3. SIMVASTATIN. [Suspect]
     Active Substance: SIMVASTATIN
     Indication: PRODUCT USED FOR UNKNOWN INDICATION
     Dosage: 10 MG, 0?0?1?0, TABLET
     Route: 048
  4. OLMESARTAN MEDOXOMIL (+) AMLODIPINE BESYLATE (+) HYDROCHLOROTHIAZIDE [Suspect]
     Active Substance: AMLODIPINE BESYLATE\HYDROCHLOROTHIAZIDE\OLMESARTAN MEDOXOMIL
     Dosage: 5 MILLIGRAM, BID
     Route: 048
  5. DILATREND [Suspect]
     Active Substance: CARVEDILOL
     Indication: PRODUCT USED FOR UNKNOWN INDICATION
     Dosage: 25 MG, 1?0?1?0, TABLET
     Route: 048
  6. TORSEMIDE. [Suspect]
     Active Substance: TORSEMIDE
     Indication: PRODUCT USED FOR UNKNOWN INDICATION
     Dosage: 5 MG, 1?0?0?0, TABLET
     Route: 048
  7. OLMESARTAN MEDOXOMIL (+) AMLODIPINE BESYLATE (+) HYDROCHLOROTHIAZIDE [Suspect]
     Active Substance: AMLODIPINE BESYLATE\HYDROCHLOROTHIAZIDE\OLMESARTAN MEDOXOMIL
     Dosage: 12.5 MILLIGRAM, BID
     Route: 048
  8. DABIGATRAN [Suspect]
     Active Substance: DABIGATRAN
     Indication: PRODUCT USED FOR UNKNOWN INDICATION
     Dosage: 110 MG, 1?0?1?0, TABLET
     Route: 048
  9. DABIGATRAN [Suspect]
     Active Substance: DABIGATRAN
     Dosage: 110 MG, 1?0?1?0, TABLET
     Route: 048
  10. OLMESARTAN MEDOXOMIL (+) AMLODIPINE BESYLATE (+) HYDROCHLOROTHIAZIDE [Suspect]
     Active Substance: AMLODIPINE BESYLATE\HYDROCHLOROTHIAZIDE\OLMESARTAN MEDOXOMIL
     Indication: PRODUCT USED FOR UNKNOWN INDICATION
     Dosage: 40 MG, BID
     Route: 048
  11. VOCADO HCT [Suspect]
     Active Substance: AMLODIPINE BESYLATE\HYDROCHLOROTHIAZIDE\OLMESARTAN MEDOXOMIL
     Dosage: 40|5|12.5 MG, 1?0?1?0, TABLET
     Route: 048

REACTIONS (6)
  - Dyspnoea [Recovered/Resolved]
  - Oedema peripheral [Recovered/Resolved]
  - Product prescribing error [Unknown]
  - Chest discomfort [Recovered/Resolved]
  - Fatigue [Recovered/Resolved]
  - Dizziness [Recovered/Resolved]
